FAERS Safety Report 9293822 (Version 1)
Quarter: 2013Q2

REPORT INFORMATION
  Report Type: Spontaneous
  Country: US (occurrence: US)
  Receive Date: 20130516
  Receipt Date: 20130516
  Transmission Date: 20140414
  Serious: Yes (Other)
  Sender: FDA-Public Use
  Company Number: US-FRI-1000045045

PATIENT
  Sex: 0

DRUGS (2)
  1. VIIBRYD [Suspect]
     Indication: MAJOR DEPRESSION
     Dosage: 40MG
  2. VIIBRYD [Suspect]
     Indication: EATING DISORDER

REACTIONS (1)
  - Ultrasound antenatal screen abnormal [Unknown]
